FAERS Safety Report 24310939 (Version 1)
Quarter: 2024Q3

REPORT INFORMATION
  Report Type: Spontaneous
  Country: FR (occurrence: FR)
  Receive Date: 20240912
  Receipt Date: 20240912
  Transmission Date: 20241017
  Serious: Yes (Hospitalization, Other)
  Sender: RANBAXY
  Company Number: FR-AFSSAPS-CN2024000585

PATIENT
  Age: 14 Year
  Sex: Female
  Weight: 60 kg

DRUGS (2)
  1. ACETAMINOPHEN [Suspect]
     Active Substance: ACETAMINOPHEN
     Indication: Poisoning deliberate
     Dosage: 16 GRAM, IN TOTAL
     Route: 048
     Dates: start: 20240309, end: 20240309
  2. IBUPROFEN [Concomitant]
     Active Substance: IBUPROFEN
     Indication: Poisoning deliberate
     Dosage: 2 DOSAGE FORM, IN TOTAL
     Route: 048
     Dates: start: 20240309, end: 20240309

REACTIONS (3)
  - Coma [Recovered/Resolved]
  - Intentional overdose [Recovered/Resolved]
  - Nausea [Recovered/Resolved]

NARRATIVE: CASE EVENT DATE: 20240309
